FAERS Safety Report 20165720 (Version 2)
Quarter: 2021Q4

REPORT INFORMATION
  Report Type: Spontaneous
  Country: CN (occurrence: CN)
  Receive Date: 20211209
  Receipt Date: 20211215
  Transmission Date: 20220304
  Serious: Yes (Hospitalization, Other)
  Sender: FDA-Public Use
  Company Number: CN-009507513-2112CHN001369

PATIENT
  Age: 61 Year
  Sex: Female
  Weight: 41 kg

DRUGS (2)
  1. INVANZ [Suspect]
     Active Substance: ERTAPENEM SODIUM
     Indication: Anti-infective therapy
     Dosage: 0.5 GRAM, QD
     Route: 041
     Dates: start: 20210420, end: 20210508
  2. SODIUM CHLORIDE [Suspect]
     Active Substance: SODIUM CHLORIDE
     Indication: Anti-infective therapy
     Dosage: 100ML, QD
     Route: 041
     Dates: start: 20210420, end: 20210508

REACTIONS (5)
  - Drug-induced liver injury [Recovering/Resolving]
  - Condition aggravated [Unknown]
  - Incorrect dose administered [Unknown]
  - Product use issue [Unknown]
  - Product preparation issue [Unknown]

NARRATIVE: CASE EVENT DATE: 20210101
